FAERS Safety Report 15881995 (Version 1)
Quarter: 2019Q1

REPORT INFORMATION
  Report Type: Spontaneous
  Country: JP (occurrence: JP)
  Receive Date: 20190128
  Receipt Date: 20190128
  Transmission Date: 20190417
  Serious: Yes (Death)
  Sender: FDA-Public Use
  Company Number: JP-PFIZER INC-2019031946

PATIENT
  Age: 69 Year
  Sex: Male

DRUGS (1)
  1. UNASYN [Suspect]
     Active Substance: AMPICILLIN SODIUM\SULBACTAM SODIUM
     Dosage: UNK
     Dates: start: 20130424, end: 20130515

REACTIONS (2)
  - Neuroleptic malignant syndrome [Fatal]
  - Drug eruption [Unknown]

NARRATIVE: CASE EVENT DATE: 20130514
